FAERS Safety Report 25793004 (Version 1)
Quarter: 2025Q3

REPORT INFORMATION
  Report Type: Spontaneous
  Country: US (occurrence: US)
  Receive Date: 20250911
  Receipt Date: 20250911
  Transmission Date: 20251020
  Serious: Yes (Other)
  Sender: AMGEN
  Company Number: US-AMGEN-USASP2025175499

PATIENT
  Age: 58 Year
  Sex: Female

DRUGS (4)
  1. PREDNISONE [Suspect]
     Active Substance: PREDNISONE
     Indication: Angioimmunoblastic T-cell lymphoma stage IV
     Route: 065
  2. BRENTUXIMAB VEDOTIN [Concomitant]
     Active Substance: BRENTUXIMAB VEDOTIN
     Indication: Angioimmunoblastic T-cell lymphoma stage IV
  3. CYCLOPHOSPHAMIDE [Concomitant]
     Active Substance: CYCLOPHOSPHAMIDE
     Indication: Angioimmunoblastic T-cell lymphoma stage IV
  4. DOXORUBICIN [Concomitant]
     Active Substance: DOXORUBICIN
     Indication: Angioimmunoblastic T-cell lymphoma stage IV

REACTIONS (6)
  - Angioimmunoblastic T-cell lymphoma stage IV [Recovering/Resolving]
  - Biliary obstruction [Recovering/Resolving]
  - Acute respiratory failure [Recovering/Resolving]
  - Pleural effusion [Recovered/Resolved]
  - Epstein-Barr viraemia [Recovering/Resolving]
  - Post transplant lymphoproliferative disorder [Recovering/Resolving]
